FAERS Safety Report 18916777 (Version 5)
Quarter: 2022Q2

REPORT INFORMATION
  Report Type: Spontaneous
  Country: CA (occurrence: CA)
  Receive Date: 20210219
  Receipt Date: 20220627
  Transmission Date: 20220721
  Serious: Yes (Hospitalization, Other)
  Sender: FDA-Public Use
  Company Number: CA-PFIZER INC-2017122344

PATIENT
  Age: 59 Year
  Sex: Male

DRUGS (24)
  1. XELJANZ [Suspect]
     Active Substance: TOFACITINIB CITRATE
     Indication: Rheumatoid arthritis
     Dosage: 5 MG, 2X/DAY
     Route: 048
     Dates: start: 20170311, end: 20170505
  2. XELJANZ [Suspect]
     Active Substance: TOFACITINIB CITRATE
     Dosage: 2.5 MG, 2X/DAY (1/2 TABLET OF 5MG), FOR 3 MONTHS NOT YET STARTED
     Route: 048
     Dates: end: 20220619
  3. XELJANZ [Suspect]
     Active Substance: TOFACITINIB CITRATE
     Dosage: 2.5 MG, 2X/DAY (1/2 TABLET OF 5MG TABLET BID)
     Route: 048
     Dates: start: 20220620
  4. ARAVA [Concomitant]
     Active Substance: LEFLUNOMIDE
     Indication: Rheumatoid arthritis
     Dosage: 10 MG, 1X/DAY
     Route: 048
     Dates: start: 20161219
  5. ASPIRIN [Concomitant]
     Active Substance: ASPIRIN
     Dosage: 81 MG
     Route: 048
  6. CARVEDILOL [Concomitant]
     Active Substance: CARVEDILOL
     Dosage: 3.125 MG, 2X/DAY
     Route: 048
  7. CANDESARTAN CILEXETIL [Concomitant]
     Active Substance: CANDESARTAN CILEXETIL
     Dosage: 8 MG, DAILY
     Route: 048
  8. ENALAPRIL MALEATE [Concomitant]
     Active Substance: ENALAPRIL MALEATE
     Dosage: 5 MG, DAILY
     Route: 048
  9. EZETIMIBE [Concomitant]
     Active Substance: EZETIMIBE
     Dosage: 10 MG
     Route: 048
  10. FOLIC ACID [Concomitant]
     Active Substance: FOLIC ACID
     Dosage: 5 MG, 3X/DAY
     Route: 048
     Dates: start: 20150714
  11. FUROSEMIDE [Concomitant]
     Active Substance: FUROSEMIDE
     Dosage: 60 MG, ONCE DAILY IN THE MORNING
     Route: 048
  12. FUROSEMIDE [Concomitant]
     Active Substance: FUROSEMIDE
     Dosage: 20 MG, 2X/DAY
     Route: 048
  13. OLODATEROL HYDROCHLORIDE\TIOTROPIUM BROMIDE MONOHYDRATE [Concomitant]
     Active Substance: OLODATEROL HYDROCHLORIDE\TIOTROPIUM BROMIDE MONOHYDRATE
     Dosage: 2 DF, DAILY
     Route: 045
  14. METHOTREXATE SODIUM [Concomitant]
     Active Substance: METHOTREXATE SODIUM
     Indication: Rheumatoid arthritis
     Dosage: 10 MG, WEEKLY
     Dates: start: 20161219
  15. METHOTREXATE [Concomitant]
     Active Substance: METHOTREXATE
     Indication: Rheumatoid arthritis
     Dosage: 10 MG, WEEKLY
  16. METHOTREXATE [Concomitant]
     Active Substance: METHOTREXATE
     Dosage: 1 DF, DOSAGE INFORMATION NOT AVAILABLE
     Route: 065
  17. NITROGLYCERIN [Concomitant]
     Active Substance: NITROGLYCERIN
     Dosage: 0.4 MG
     Route: 048
  18. PLAQUENIL [Concomitant]
     Active Substance: HYDROXYCHLOROQUINE SULFATE
     Indication: Rheumatoid arthritis
     Dosage: 200 MG, 2X/DAY
     Route: 048
     Dates: start: 20150714
  19. RABEPRAZOLE SODIUM [Concomitant]
     Active Substance: RABEPRAZOLE SODIUM
     Dosage: 20 MG
     Route: 048
  20. REPATHA [Concomitant]
     Active Substance: EVOLOCUMAB
     Dosage: UNK
  21. ALBUTEROL SULFATE [Concomitant]
     Active Substance: ALBUTEROL SULFATE
     Dosage: 100 UG
     Route: 055
  22. TRAMADOL HCL [Concomitant]
     Active Substance: TRAMADOL HYDROCHLORIDE
     Indication: Rheumatoid arthritis
     Dosage: 40MG TWICE DAILY AS NEEDED
     Route: 048
  23. VENTOLIN HFA [Concomitant]
     Active Substance: ALBUTEROL SULFATE
     Dosage: 100 UG, DAILY
  24. ZOSTAVAX [Concomitant]
     Active Substance: VARICELLA-ZOSTER VIRUS STRAIN OKA/MERCK LIVE ANTIGEN
     Dosage: UNK

REACTIONS (20)
  - Herpes zoster [Unknown]
  - Pneumonia [Unknown]
  - Diabetes mellitus [Not Recovered/Not Resolved]
  - Therapeutic product effect incomplete [Recovering/Resolving]
  - Intentional underdose [Unknown]
  - Diarrhoea [Recovered/Resolved]
  - Oral herpes [Not Recovered/Not Resolved]
  - Dizziness [Recovered/Resolved]
  - Pain [Unknown]
  - Fatigue [Unknown]
  - Beta globulin increased [Unknown]
  - Blood glucose increased [Unknown]
  - Glycosylated haemoglobin increased [Unknown]
  - Red blood cell sedimentation rate increased [Unknown]
  - Red blood cell count decreased [Unknown]
  - Lymphocyte count decreased [Unknown]
  - Blood phosphorus decreased [Unknown]
  - Sleep disorder [Unknown]
  - Red cell distribution width increased [Unknown]
  - Prescribed underdose [Unknown]

NARRATIVE: CASE EVENT DATE: 20190101
